FAERS Safety Report 16625753 (Version 1)
Quarter: 2019Q3

REPORT INFORMATION
  Report Type: Spontaneous
  Country: US (occurrence: US)
  Receive Date: 20190724
  Receipt Date: 20190724
  Transmission Date: 20191004
  Serious: Yes (Disabling)
  Sender: FDA-Public Use
  Company Number: None

PATIENT

DRUGS (1)
  1. CHLORHEXIDINE GLUCONATE .12% [Suspect]
     Active Substance: CHLORHEXIDINE GLUCONATE
     Indication: GINGIVITIS
     Route: 048

REACTIONS (4)
  - Mouth ulceration [None]
  - Oral pain [None]
  - Mastication disorder [None]
  - Tongue ulceration [None]
